FAERS Safety Report 7804234-5 (Version None)
Quarter: 2011Q4

REPORT INFORMATION
  Report Type: 
  Country: None (occurrence: None)
  Receive Date: 20111010
  Receipt Date: 20110927
  Transmission Date: 20120403
  Serious: Yes (Hospitalization)
  Sender: FDA-Public Use
  Company Number: FR-SANOFI-AVENTIS-2011SA063239

PATIENT
  Age: 66 Year
  Sex: Female

DRUGS (3)
  1. PYOSTACINE [Suspect]
     Indication: SPUTUM PURULENT
     Route: 048
     Dates: start: 20100224, end: 20100307
  2. PYOSTACINE [Suspect]
     Route: 048
     Dates: start: 20100224, end: 20100307
  3. CLAFORAN [Suspect]
     Route: 065
     Dates: start: 20100217

REACTIONS (1)
  - ACUTE GENERALISED EXANTHEMATOUS PUSTULOSIS [None]
